FAERS Safety Report 5530278-2 (Version None)
Quarter: 2007Q4

REPORT INFORMATION
  Report Type: 
  Country: None (occurrence: None)
  Receive Date: 20071127
  Receipt Date: 20071127
  Transmission Date: 20080405
  Serious: Yes (Hospitalization)
  Sender: FDA-Public Use
  Company Number: None

PATIENT
  Age: 62 Year
  Sex: Female
  Weight: 71.7 kg

DRUGS (5)
  1. CETUXIMAB [Suspect]
     Indication: BREAST CANCER METASTATIC
     Dosage: 250MG/M2 WEEKLY IV BOLUS
     Route: 040
     Dates: start: 20070607, end: 20071121
  2. CARBOPLATIN [Suspect]
     Indication: BREAST CANCER METASTATIC
     Dosage: 1.5 AUC WEEKLY IV BOLUS
     Route: 040
     Dates: start: 20070607, end: 20071121
  3. COMPAZINE [Concomitant]
  4. MAGNESIUM OXIDE [Concomitant]
  5. LOVENOX [Concomitant]

REACTIONS (4)
  - EMPHYSEMA [None]
  - HYPOXIA [None]
  - INFECTION [None]
  - OEDEMA [None]
